FAERS Safety Report 20758919 (Version 2)
Quarter: 2022Q2

REPORT INFORMATION
  Report Type: Report from Study
  Country: DE (occurrence: DE)
  Receive Date: 20220427
  Receipt Date: 20220621
  Transmission Date: 20220721
  Serious: Yes (Hospitalization, Other)
  Sender: FDA-Public Use
  Company Number: DE-BRISTOL-MYERS SQUIBB COMPANY-2022-026085

PATIENT
  Age: 61 Year
  Sex: Male

DRUGS (27)
  1. NIVOLUMAB [Suspect]
     Active Substance: NIVOLUMAB
     Indication: Malignant melanoma
     Dosage: [TOTAL NIVOLUMAB DOSE DELIVERED DURING THIS INFUSION] : 260
     Dates: start: 20170124, end: 20170124
  2. NIVOLUMAB [Suspect]
     Active Substance: NIVOLUMAB
     Indication: Lung neoplasm malignant
     Dosage: [TOTAL NIVOLUMAB DOSE DELIVERED DURING THIS INFUSION] : 260
     Dates: start: 20170207, end: 20170207
  3. NIVOLUMAB [Suspect]
     Active Substance: NIVOLUMAB
     Dosage: [TOTAL NIVOLUMAB DOSE DELIVERED DURING THIS INFUSION] : 260
     Dates: start: 20170221, end: 20170221
  4. NIVOLUMAB [Suspect]
     Active Substance: NIVOLUMAB
     Dosage: [TOTAL NIVOLUMAB DOSE DELIVERED DURING THIS INFUSION] : 260
     Dates: start: 20170307, end: 20170307
  5. NIVOLUMAB [Suspect]
     Active Substance: NIVOLUMAB
     Dosage: [TOTAL NIVOLUMAB DOSE DELIVERED DURING THIS INFUSION] : 260
     Dates: start: 20170321, end: 20170321
  6. NIVOLUMAB [Suspect]
     Active Substance: NIVOLUMAB
     Dosage: [TOTAL NIVOLUMAB DOSE DELIVERED DURING THIS INFUSION] : 260
     Dates: start: 20170404, end: 20170404
  7. NIVOLUMAB [Suspect]
     Active Substance: NIVOLUMAB
     Dosage: [TOTAL NIVOLUMAB DOSE DELIVERED DURING THIS INFUSION] : 260
     Dates: start: 20170418, end: 20170418
  8. NIVOLUMAB [Suspect]
     Active Substance: NIVOLUMAB
     Dosage: [TOTAL NIVOLUMAB DOSE DELIVERED DURING THIS INFUSION] : 260
     Dates: start: 20170502, end: 20170502
  9. NIVOLUMAB [Suspect]
     Active Substance: NIVOLUMAB
     Dosage: [TOTAL NIVOLUMAB DOSE DELIVERED DURING THIS INFUSION] : 260
     Dates: start: 20170516, end: 20170516
  10. NIVOLUMAB [Suspect]
     Active Substance: NIVOLUMAB
     Dosage: [TOTAL NIVOLUMAB DOSE DELIVERED DURING THIS INFUSION] : 260
     Dates: start: 20170530, end: 20170530
  11. NIVOLUMAB [Suspect]
     Active Substance: NIVOLUMAB
     Dosage: [TOTAL NIVOLUMAB DOSE DELIVERED DURING THIS INFUSION] : 260
     Dates: start: 20170613, end: 20170613
  12. NIVOLUMAB [Suspect]
     Active Substance: NIVOLUMAB
     Dosage: [TOTAL NIVOLUMAB DOSE DELIVERED DURING THIS INFUSION] : 260
     Dates: start: 20170627, end: 20170627
  13. NIVOLUMAB [Suspect]
     Active Substance: NIVOLUMAB
     Dosage: [TOTAL NIVOLUMAB DOSE DELIVERED DURING THIS INFUSION] : 285
     Dates: start: 20170711, end: 20170711
  14. NIVOLUMAB [Suspect]
     Active Substance: NIVOLUMAB
     Dosage: [TOTAL NIVOLUMAB DOSE DELIVERED DURING THIS INFUSION] : 285
     Dates: start: 20170725, end: 20170725
  15. NIVOLUMAB [Suspect]
     Active Substance: NIVOLUMAB
     Dosage: [TOTAL NIVOLUMAB DOSE DELIVERED DURING THIS INFUSION] : 285
     Dates: start: 20170808, end: 20170808
  16. NIVOLUMAB [Suspect]
     Active Substance: NIVOLUMAB
     Dosage: [TOTAL NIVOLUMAB DOSE DELIVERED DURING THIS INFUSION] : 285
     Dates: start: 20171206, end: 20171206
  17. NIVOLUMAB [Suspect]
     Active Substance: NIVOLUMAB
     Dosage: [TOTAL NIVOLUMAB DOSE DELIVERED DURING THIS INFUSION] : 285
     Dates: start: 20171220, end: 20171220
  18. NIVOLUMAB [Suspect]
     Active Substance: NIVOLUMAB
     Dosage: [TOTAL NIVOLUMAB DOSE DELIVERED DURING THIS INFUSION] : 285
     Dates: start: 20180124, end: 20180124
  19. NIVOLUMAB [Suspect]
     Active Substance: NIVOLUMAB
     Dosage: [TOTAL NIVOLUMAB DOSE DELIVERED DURING THIS INFUSION] : 285
     Dates: start: 20180207, end: 20180207
  20. NIVOLUMAB [Suspect]
     Active Substance: NIVOLUMAB
     Dosage: [TOTAL NIVOLUMAB DOSE DELIVERED DURING THIS INFUSION] : 285
     Dates: start: 20180221, end: 20180221
  21. NIVOLUMAB [Suspect]
     Active Substance: NIVOLUMAB
     Dosage: [TOTAL NIVOLUMAB DOSE DELIVERED DURING THIS INFUSION] : 285
     Dates: start: 20180308, end: 20180308
  22. NIVOLUMAB [Suspect]
     Active Substance: NIVOLUMAB
     Dosage: [TOTAL NIVOLUMAB DOSE DELIVERED DURING THIS INFUSION] : 285
     Dates: start: 20180322, end: 20180322
  23. NIVOLUMAB [Suspect]
     Active Substance: NIVOLUMAB
     Dosage: [TOTAL NIVOLUMAB DOSE DELIVERED DURING THIS INFUSION] : 285
     Dates: start: 20180405, end: 20180405
  24. NIVOLUMAB [Suspect]
     Active Substance: NIVOLUMAB
     Dosage: [TOTAL NIVOLUMAB DOSE DELIVERED DURING THIS INFUSION] : 260
     Dates: start: 20180419, end: 20180419
  25. NIVOLUMAB [Suspect]
     Active Substance: NIVOLUMAB
     Dosage: [TOTAL NIVOLUMAB DOSE DELIVERED DURING THIS INFUSION] : 260
     Dates: start: 20180503, end: 20180503
  26. NIVOLUMAB [Suspect]
     Active Substance: NIVOLUMAB
     Dosage: [TOTAL NIVOLUMAB DOSE DELIVERED DURING THIS INFUSION] : 260
     Dates: start: 20180524, end: 20180524
  27. NIVOLUMAB [Suspect]
     Active Substance: NIVOLUMAB
     Dosage: [TOTAL NIVOLUMAB DOSE DELIVERED DURING THIS INFUSION] : 260
     Dates: start: 20180611, end: 20180611

REACTIONS (2)
  - General physical condition abnormal [Recovered/Resolved]
  - Malignant neoplasm progression [Recovered/Resolved]

NARRATIVE: CASE EVENT DATE: 20170801
